FAERS Safety Report 22063612 (Version 1)
Quarter: 2023Q1

REPORT INFORMATION
  Report Type: Other
  Country: EC (occurrence: None)
  Receive Date: 20230306
  Receipt Date: 20230306
  Transmission Date: 20230418
  Serious: Yes (Other)
  Sender: FDA-Public Use
  Company Number: EC-ROCHE-3298024

PATIENT
  Age: 69 Year
  Sex: Female

DRUGS (4)
  1. TOCILIZUMAB [Suspect]
     Active Substance: TOCILIZUMAB
     Indication: COVID-19 pneumonia
     Route: 065
  2. PREDNISONE [Suspect]
     Active Substance: PREDNISONE
     Indication: Autoimmune pancreatitis
     Route: 065
  3. DEXAMETHASONE [Suspect]
     Active Substance: DEXAMETHASONE
     Indication: COVID-19 pneumonia
     Route: 065
  4. METFORMIN [Concomitant]
     Active Substance: METFORMIN HYDROCHLORIDE

REACTIONS (2)
  - Tuberculosis [Unknown]
  - Off label use [Unknown]
